FAERS Safety Report 11395309 (Version 2)
Quarter: 2015Q3

REPORT INFORMATION
  Report Type: Spontaneous
  Country: JP (occurrence: JP)
  Receive Date: 20150819
  Receipt Date: 20150915
  Transmission Date: 20151125
  Serious: Yes (Death, Life-Threatening)
  Sender: FDA-Public Use
  Company Number: JP-MYLANLABS-2015M1009019

PATIENT

DRUGS (2)
  1. ABRAXANE [Suspect]
     Active Substance: PACLITAXEL
     Indication: LUNG ADENOCARCINOMA STAGE IV
     Dosage: 170 MG, UNK
     Route: 041
     Dates: start: 20150303
  2. CARBOPLATIN INJECTION 50 MG ^NK^ [Suspect]
     Active Substance: CARBOPLATIN
     Indication: LUNG ADENOCARCINOMA STAGE IV
     Dosage: 480 MG, UNK
     Route: 041
     Dates: start: 20150303

REACTIONS (6)
  - Urinary retention [Not Recovered/Not Resolved]
  - Bone marrow failure [Fatal]
  - Oral candidiasis [Recovered/Resolved]
  - Disseminated intravascular coagulation [Fatal]
  - Sepsis [Unknown]
  - Alopecia [Unknown]

NARRATIVE: CASE EVENT DATE: 20150303
